FAERS Safety Report 10331798 (Version 1)
Quarter: 2014Q3

REPORT INFORMATION
  Report Type: Spontaneous
  Country: US (occurrence: US)
  Receive Date: 20140722
  Receipt Date: 20140722
  Transmission Date: 20150326
  Serious: Yes (Death, Other)
  Sender: FDA-Public Use
  Company Number: PHHY2014US087648

PATIENT
  Age: 60 Year
  Sex: Male

DRUGS (3)
  1. IDARUBICIN [Suspect]
     Active Substance: IDARUBICIN
     Indication: ACUTE MYELOID LEUKAEMIA
  2. ANTHRACYCLINES [Suspect]
     Active Substance: UNSPECIFIED INGREDIENT
     Indication: ACUTE MYELOID LEUKAEMIA
  3. DECITABINE. [Suspect]
     Active Substance: DECITABINE
     Indication: ACUTE MYELOID LEUKAEMIA

REACTIONS (12)
  - Diffuse large B-cell lymphoma [Not Recovered/Not Resolved]
  - Rash papular [Not Recovered/Not Resolved]
  - Lymphadenopathy [Not Recovered/Not Resolved]
  - Pancytopenia [Unknown]
  - Acute myeloid leukaemia recurrent [Not Recovered/Not Resolved]
  - Rash [Not Recovered/Not Resolved]
  - Herpes dermatitis [Unknown]
  - Sinusitis fungal [Unknown]
  - Death [Fatal]
  - Pyrexia [Not Recovered/Not Resolved]
  - Rash erythematous [Not Recovered/Not Resolved]
  - Acute myeloid leukaemia [Not Recovered/Not Resolved]
